FAERS Safety Report 6376312-1 (Version None)
Quarter: 2009Q3

REPORT INFORMATION
  Report Type: 
  Country: None (occurrence: None)
  Receive Date: 20090925
  Receipt Date: 20090911
  Transmission Date: 20100115
  Serious: Yes (Other)
  Sender: FDA-Public Use
  Company Number: GR-RANBAXY-2009RR-28095

PATIENT
  Age: 17 Year
  Sex: Male

DRUGS (1)
  1. ISOTRETINOIN [Suspect]
     Indication: ACNE
     Route: 048

REACTIONS (6)
  - ANXIETY [None]
  - DELUSION [None]
  - DEPRESSION [None]
  - HALLUCINATION, AUDITORY [None]
  - SOCIAL PROBLEM [None]
  - SUICIDAL IDEATION [None]
